FAERS Safety Report 13501751 (Version 1)
Quarter: 2017Q2

REPORT INFORMATION
  Report Type: Spontaneous
  Country: US (occurrence: US)
  Receive Date: 20170502
  Receipt Date: 20170502
  Transmission Date: 20170830
  Serious: Yes (Hospitalization, Other)
  Sender: FDA-Public Use
  Company Number: US-AUROBINDO-AUR-APL-2017-33194

PATIENT
  Age: 26 Year
  Sex: Female

DRUGS (2)
  1. CLOZAPINE 200 MG [Suspect]
     Active Substance: CLOZAPINE
     Dosage: 300 MG, AT BEDTIME
     Route: 065
  2. CLOZAPINE 200 MG [Suspect]
     Active Substance: CLOZAPINE
     Indication: SCHIZOPHRENIA
     Dosage: 200 MG, UNK
     Route: 065

REACTIONS (3)
  - Pneumonia necrotising [Recovering/Resolving]
  - Salivary hypersecretion [Recovering/Resolving]
  - Toxicity to various agents [Recovering/Resolving]
